FAERS Safety Report 23339124 (Version 3)
Quarter: 2024Q1

REPORT INFORMATION
  Report Type: Spontaneous
  Country: AU (occurrence: AU)
  Receive Date: 20231226
  Receipt Date: 20240216
  Transmission Date: 20240410
  Serious: Yes (Other)
  Sender: FDA-Public Use
  Company Number: AU-BRISTOL-MYERS SQUIBB COMPANY-2023-181839

PATIENT
  Age: 73 Year
  Sex: Female

DRUGS (1)
  1. ORENCIA [Suspect]
     Active Substance: ABATACEPT
     Indication: Product used for unknown indication
     Route: 058
     Dates: start: 202308

REACTIONS (3)
  - Device delivery system issue [Unknown]
  - Device operational issue [Unknown]
  - Device safety feature issue [Unknown]

NARRATIVE: CASE EVENT DATE: 20231211
